FAERS Safety Report 13143971 (Version 1)
Quarter: 2017Q1

REPORT INFORMATION
  Report Type: Spontaneous
  Country: IT (occurrence: IT)
  Receive Date: 20170124
  Receipt Date: 20170124
  Transmission Date: 20170428
  Serious: Yes (Hospitalization)
  Sender: FDA-Public Use
  Company Number: IT-ASTRAZENECA-2017SE05328

PATIENT
  Age: 81 Year
  Sex: Female

DRUGS (6)
  1. TICAGRELOR [Suspect]
     Active Substance: TICAGRELOR
     Indication: PREMEDICATION
     Dosage: 180.0MG UNKNOWN
     Route: 048
  2. ACETYLSALICYLIC ACID [Suspect]
     Active Substance: ASPIRIN
     Indication: PREMEDICATION
     Dosage: 300.0MG UNKNOWN
     Route: 065
  3. ABCIXIMAB [Concomitant]
     Active Substance: ABCIXIMAB
     Dosage: 0.125 ?G/KG/MIN FOR 12 H
  4. HEPARIN [Suspect]
     Active Substance: HEPARIN SODIUM
     Indication: PREMEDICATION
     Dosage: 5000.0IU UNKNOWN
     Route: 042
  5. ADENOSINE. [Concomitant]
     Active Substance: ADENOSINE
  6. ABCIXIMAB [Concomitant]
     Active Substance: ABCIXIMAB
     Dosage: 0.25 MG/KG
     Route: 040

REACTIONS (1)
  - Coronary artery thrombosis [Recovered/Resolved]
